FAERS Safety Report 7181892-2 (Version None)
Quarter: 2010Q4

REPORT INFORMATION
  Report Type: 
  Country: None (occurrence: None)
  Receive Date: 20101221
  Receipt Date: 20100503
  Transmission Date: 20110411
  Serious: No
  Sender: FDA-Public Use
  Company Number: US-AMGEN-KDL409837

PATIENT

DRUGS (12)
  1. ENBREL [Suspect]
     Indication: RHEUMATOID ARTHRITIS
     Dosage: 50 MG, QWK
     Route: 058
  2. CENTRUM SILVER [Concomitant]
     Dosage: UNK UNK, UNK
  3. SERTRALINE HYDROCHLORIDE [Concomitant]
     Dosage: 50 MG, UNK
  4. PREDNISONE [Concomitant]
     Dosage: 5 MG, UNK
  5. AMLODIPINE BESYLATE [Concomitant]
     Dosage: 5 MG, UNK
  6. LEFLUNOMIDE [Concomitant]
     Dosage: 20 MG, UNK
  7. ACTONEL [Concomitant]
     Dosage: 5 MG, UNK
  8. DOXEPIN HYDROCHLORIDE [Concomitant]
     Dosage: 50 MG, UNK
  9. TAMSULOSIN HCL [Concomitant]
     Dosage: .4 MG, UNK
  10. CALCIUM WITH VITAMIN D [Concomitant]
     Dosage: UNK UNK, UNK
  11. VITAMIN B COMPLEX [Concomitant]
     Dosage: UNK UNK, UNK
  12. ASPIRIN [Concomitant]
     Dosage: 81 MG, UNK

REACTIONS (1)
  - STAPHYLOCOCCAL SKIN INFECTION [None]
